FAERS Safety Report 5846986-X (Version None)
Quarter: 2008Q3

REPORT INFORMATION
  Report Type: 
  Country: None (occurrence: None)
  Receive Date: 20080815
  Receipt Date: 20080804
  Transmission Date: 20090109
  Serious: Yes (Other)
  Sender: FDA-Public Use
  Company Number: GB-ROCHE-579868

PATIENT
  Age: 77 Year
  Sex: Female

DRUGS (4)
  1. CAPECITABINE [Suspect]
     Indication: POROCARCINOMA
     Route: 065
  2. RITUXIMAB [Suspect]
     Dosage: INDICATION: CHRONIC LYMPHOCYTIC LEUKEMIA AND RED CELL APLASIA.
     Route: 065
  3. INTERFERON ALFA [Suspect]
     Indication: POROCARCINOMA
     Route: 065
  4. PACLITAXEL [Suspect]
     Indication: POROCARCINOMA
     Route: 065

REACTIONS (1)
  - POROCARCINOMA [None]
